FAERS Safety Report 4814072-3 (Version None)
Quarter: 2005Q4

REPORT INFORMATION
  Report Type: 
  Country: None (occurrence: None)
  Receive Date: 20051028
  Receipt Date: 20050922
  Transmission Date: 20060501
  Serious: Yes (Life-Threatening, Hospitalization)
  Sender: FDA-Public Use
  Company Number: 2005AP05074

PATIENT
  Age: 28412 Day
  Sex: Male

DRUGS (10)
  1. ZOLADEX [Suspect]
     Indication: PROSTATE CANCER
     Route: 058
     Dates: start: 20050615
  2. WARFARIN [Suspect]
     Indication: THROMBOSIS
     Route: 048
     Dates: end: 20050917
  3. CASODEX [Concomitant]
     Indication: PROSTATE CANCER
     Route: 048
     Dates: start: 20050615
  4. HALFDIGOXIN [Concomitant]
     Indication: ATRIAL FIBRILLATION
     Route: 048
  5. LASIX [Concomitant]
     Indication: CARDIAC FAILURE
     Route: 048
  6. GASTER D [Concomitant]
     Indication: GASTRITIS
     Route: 048
  7. HARNAL [Concomitant]
     Indication: BENIGN PROSTATIC HYPERPLASIA
     Route: 048
  8. ZYRTEC [Concomitant]
     Indication: URTICARIA
     Route: 048
  9. LENDORMIN [Concomitant]
     Indication: INSOMNIA
     Route: 048
  10. DOGMATYL [Concomitant]
     Indication: GASTRIC ULCER
     Route: 048

REACTIONS (2)
  - ANAEMIA [None]
  - SUBCUTANEOUS HAEMATOMA [None]
